FAERS Safety Report 12124604 (Version 1)
Quarter: 2016Q1

REPORT INFORMATION
  Report Type: Spontaneous
  Country: BR (occurrence: BR)
  Receive Date: 20160229
  Receipt Date: 20160229
  Transmission Date: 20160526
  Serious: Yes (Other)
  Sender: FDA-Public Use
  Company Number: BR-ROCHE-1716457

PATIENT
  Sex: Female

DRUGS (8)
  1. VALIUM [Suspect]
     Active Substance: DIAZEPAM
     Indication: INSOMNIA
  2. OMEGA 3 [Concomitant]
     Active Substance: OMEGA-3 FATTY ACIDS
     Dosage: 1 TABLET
     Route: 065
  3. VALIUM [Suspect]
     Active Substance: DIAZEPAM
     Indication: DEPRESSION
  4. AMYTRIL [Concomitant]
     Active Substance: AMITRIPTYLINE HYDROCHLORIDE
  5. ATENOLOL. [Concomitant]
     Active Substance: ATENOLOL
     Indication: BLOOD PRESSURE ABNORMAL
     Dosage: 1 TABLET
     Route: 065
  6. HYDROCHLOROTHIAZIDE. [Concomitant]
     Active Substance: HYDROCHLOROTHIAZIDE
     Indication: BLOOD PRESSURE ABNORMAL
     Dosage: 1 TABLET
     Route: 065
     Dates: start: 2006
  7. VALIUM [Suspect]
     Active Substance: DIAZEPAM
     Indication: PANIC DISORDER
     Route: 048
     Dates: start: 2001, end: 201601
  8. FLUOXETINE [Concomitant]
     Active Substance: FLUOXETINE HYDROCHLORIDE
     Indication: DEPRESSION
     Dosage: 1 TABLET
     Route: 065

REACTIONS (5)
  - Osteoarthritis [Not Recovered/Not Resolved]
  - Drug dependence [Unknown]
  - Cataract [Not Recovered/Not Resolved]
  - Blood pressure increased [Unknown]
  - Drug ineffective [Unknown]

NARRATIVE: CASE EVENT DATE: 2006
